FAERS Safety Report 5732935-1 (Version None)
Quarter: 2008Q2

REPORT INFORMATION
  Report Type: 
  Country: None (occurrence: None)
  Receive Date: 20080509
  Receipt Date: 20080414
  Transmission Date: 20081010
  Serious: No
  Sender: FDA-Public Use
  Company Number: A0722612A

PATIENT
  Age: 77 Year
  Sex: Female

DRUGS (6)
  1. COREG CR [Suspect]
     Indication: HYPERTENSION
     Dosage: 40MG PER DAY
     Route: 048
  2. GUANABENZ [Concomitant]
  3. ALLOPURINOL [Concomitant]
  4. GLIMEPIRIDE [Concomitant]
  5. COZAAR [Concomitant]
  6. ASPIRIN [Concomitant]

REACTIONS (1)
  - HEADACHE [None]
